FAERS Safety Report 4871529-7 (Version None)
Quarter: 2005Q4

REPORT INFORMATION
  Report Type: 
  Country: None (occurrence: None)
  Receive Date: 20051229
  Receipt Date: 20051214
  Transmission Date: 20060501
  Serious: Yes (Hospitalization, Other)
  Sender: FDA-Public Use
  Company Number: US200512002575

PATIENT
  Age: 53 Year
  Sex: Female

DRUGS (10)
  1. HUMULIN N [Suspect]
     Indication: DIABETES MELLITUS
  2. HUMULIN R [Suspect]
     Indication: DIABETES MELLITUS
  3. ZOCOR [Concomitant]
  4. LISINOPRIL [Concomitant]
  5. TOPROL-XL [Concomitant]
  6. ISOSORBIDE MONONITRATE [Concomitant]
  7. FOLIC ACID (FOLIC ACID UNKNOWN MANUFACTURER) [Concomitant]
  8. NEXIUM/UNK/(ESOMEPRAZOLE) [Concomitant]
  9. ZOLOFT [Concomitant]
  10. SULFASALAZINE [Concomitant]

REACTIONS (4)
  - BLOOD GLUCOSE INCREASED [None]
  - PHARMACEUTICAL PRODUCT COMPLAINT [None]
  - POOR QUALITY DRUG ADMINISTERED [None]
  - SILENT MYOCARDIAL INFARCTION [None]
